FAERS Safety Report 8271649-3 (Version None)
Quarter: 2012Q2

REPORT INFORMATION
  Report Type: 
  Country: None (occurrence: None)
  Receive Date: 20120410
  Receipt Date: 20120406
  Transmission Date: 20120825
  Serious: Yes (Death, Life-Threatening, Hospitalization)
  Sender: FDA-Public Use
  Company Number: US-GLAXOSMITHKLINE-Z0008616A

PATIENT
  Age: 76 Year
  Sex: Female
  Weight: 42.7 kg

DRUGS (1)
  1. ELTROMBOPAG [Suspect]
     Indication: THROMBOCYTOPENIA
     Route: 048
     Dates: start: 20110310, end: 20110322

REACTIONS (2)
  - HAEMORRHAGE [None]
  - SUBCUTANEOUS HAEMATOMA [None]
